FAERS Safety Report 12772355 (Version 1)
Quarter: 2016Q3

REPORT INFORMATION
  Report Type: Spontaneous
  Country: GB (occurrence: GB)
  Receive Date: 20160922
  Receipt Date: 20160922
  Transmission Date: 20161109
  Serious: Yes (Disabling, Other)
  Sender: FDA-Public Use
  Company Number: GB-MYLANLABS-2016M1039418

PATIENT

DRUGS (11)
  1. LANSOPRAZOLE. [Suspect]
     Active Substance: LANSOPRAZOLE
     Indication: PROPHYLAXIS AGAINST GASTROINTESTINAL ULCER
     Dosage: 15 MG, QD
     Dates: start: 201508, end: 201510
  2. NAPROXEN. [Concomitant]
     Active Substance: NAPROXEN
     Indication: OSTEOARTHRITIS
     Dosage: 250 MG, BID (LONG TERM)
  3. QUININE SULPHATE [Concomitant]
     Active Substance: QUININE SULFATE
     Dosage: 200 MG, QD (AT NIGHT.)
  4. LOPRAZOLAM [Concomitant]
     Active Substance: LOPRAZOLAM
     Dosage: 1 MG, UNK (HALF A TABLET AT NIGHT.)
  5. COLCHICINE. [Concomitant]
     Active Substance: COLCHICINE
     Dosage: 500 ?G, UNK
  6. RANITIDINE. [Concomitant]
     Active Substance: RANITIDINE
     Dosage: 150 MG, BID
  7. ALLOPURINOL. [Concomitant]
     Active Substance: ALLOPURINOL
     Dosage: 300 MG, QD (AT NIGHT.)
  8. LANSOPRAZOLE. [Suspect]
     Active Substance: LANSOPRAZOLE
     Dosage: 30 MG, BID
     Dates: start: 201510, end: 201607
  9. PARACETAMOL [Concomitant]
     Active Substance: ACETAMINOPHEN
     Dosage: 500 MG, UNK
  10. ATORVASTATIN [Concomitant]
     Active Substance: ATORVASTATIN
     Dosage: 20 MG, QD
  11. HALOPERIDOL. [Concomitant]
     Active Substance: HALOPERIDOL
     Dosage: 0.5 MG, UNK

REACTIONS (17)
  - Liver function test abnormal [Recovered/Resolved]
  - Abnormal loss of weight [Recovered/Resolved]
  - Gastritis [Recovered/Resolved]
  - Skin haemorrhage [Recovered/Resolved]
  - Haemoglobin decreased [Recovered/Resolved]
  - Change of bowel habit [Recovered/Resolved]
  - Dizziness [Recovered/Resolved]
  - Dry mouth [Recovered/Resolved]
  - Abnormal faeces [Recovered/Resolved]
  - Pruritus [Recovered/Resolved]
  - Diarrhoea [Recovered/Resolved]
  - Nausea [Recovered/Resolved]
  - Vomiting [Recovered/Resolved]
  - Diverticulum [Recovered/Resolved]
  - Decreased appetite [Recovered/Resolved]
  - Flatulence [Recovered/Resolved]
  - Fatigue [Recovered/Resolved]

NARRATIVE: CASE EVENT DATE: 201509
